FAERS Safety Report 4688885-5 (Version None)
Quarter: 2005Q2

REPORT INFORMATION
  Report Type: 
  Country: None (occurrence: None)
  Receive Date: 20050606
  Receipt Date: 20050518
  Transmission Date: 20051028
  Serious: Yes (Death)
  Sender: FDA-Public Use
  Company Number: THYM-10572

PATIENT
  Age: 70 Year
  Sex: Male

DRUGS (1)
  1. THYMOGLOBULIN [Suspect]

REACTIONS (2)
  - MUCORMYCOSIS [None]
  - MULTI-ORGAN FAILURE [None]
